FAERS Safety Report 4431479-7 (Version None)
Quarter: 2004Q3

REPORT INFORMATION
  Report Type: 
  Country: None (occurrence: None)
  Receive Date: 20040817
  Receipt Date: 20040802
  Transmission Date: 20050211
  Serious: Yes (Hospitalization)
  Sender: FDA-Public Use
  Company Number: 04P-056-0268908-00

PATIENT
  Age: 51 Year
  Sex: Male

DRUGS (6)
  1. BIAXIN [Suspect]
     Dosage: UNK
     Route: 065
     Dates: start: 20040214
  2. BIAXIN [Suspect]
     Dosage: UNK
     Route: 065
     Dates: start: 20040409
  3. PREDNISOLONE [Suspect]
     Dosage: UNK
     Route: 065
     Dates: start: 20040214
  4. PREDNISOLONE [Suspect]
     Dosage: UNK
     Route: 065
     Dates: start: 20040416
  5. PARACETAMOL [Suspect]
     Dosage: UNK
     Route: 065
     Dates: start: 20040214
  6. PARACETAMOL [Suspect]
     Dosage: UNK
     Route: 065
     Dates: start: 20040402

REACTIONS (3)
  - ANGIONEUROTIC OEDEMA [None]
  - DISCOMFORT [None]
  - URTICARIA [None]
